FAERS Safety Report 9450832 (Version 1)
Quarter: 2013Q3

REPORT INFORMATION
  Report Type: Spontaneous
  Country: DE (occurrence: DE)
  Receive Date: 20130809
  Receipt Date: 20130809
  Transmission Date: 20140515
  Serious: Yes (Hospitalization, Other)
  Sender: FDA-Public Use
  Company Number: DE-PFIZER INC-2013227195

PATIENT
  Sex: Female
  Weight: 3.65 kg

DRUGS (2)
  1. SERTRALINE HCL [Suspect]
     Indication: DEPRESSION
     Dosage: 50 MG, 1X/DAY
     Route: 064
  2. SERTRALINE HCL [Suspect]
     Dosage: 50 MG, 1X/DAY
     Route: 063

REACTIONS (4)
  - Maternal exposure during pregnancy [Recovered/Resolved]
  - Exposure during breast feeding [Recovered/Resolved]
  - Agitation neonatal [Recovered/Resolved]
  - Oxygen saturation decreased [Recovered/Resolved]
